FAERS Safety Report 20592885 (Version 1)
Quarter: 2022Q1

REPORT INFORMATION
  Report Type: Spontaneous
  Country: JP (occurrence: JP)
  Receive Date: 20220315
  Receipt Date: 20220315
  Transmission Date: 20220424
  Serious: Yes (Other)
  Sender: FDA-Public Use
  Company Number: JP-NOVARTISPH-NVSJ2022JP004480

PATIENT
  Age: 58 Year
  Sex: Female

DRUGS (1)
  1. EXFORGE [Suspect]
     Active Substance: AMLODIPINE BESYLATE\VALSARTAN
     Indication: Product used for unknown indication
     Dosage: 1 DF:VALSARTAN 80MG,AMLODIPINE 5MG
     Route: 048

REACTIONS (2)
  - Genital haemorrhage [Unknown]
  - Blood oestrogen increased [Unknown]
